FAERS Safety Report 17451103 (Version 3)
Quarter: 2020Q2

REPORT INFORMATION
  Report Type: Spontaneous
  Country: CA (occurrence: CA)
  Receive Date: 20200224
  Receipt Date: 20200413
  Transmission Date: 20200713
  Serious: Yes (Other)
  Sender: FDA-Public Use
  Company Number: CA-PFIZER INC-2020039339

PATIENT
  Age: 59 Year
  Sex: Female

DRUGS (2)
  1. XELJANZ [Suspect]
     Active Substance: TOFACITINIB CITRATE
     Indication: PSORIATIC ARTHROPATHY
     Dosage: 5 MG, 2X/DAY
     Route: 048
     Dates: start: 20200106, end: 202003
  2. METHOTREXATE. [Concomitant]
     Active Substance: METHOTREXATE
     Dosage: 20 MG, WEEKLY
     Route: 048

REACTIONS (8)
  - Abdominal pain [Unknown]
  - Mouth ulceration [Unknown]
  - Oral pain [Unknown]
  - Blood pressure fluctuation [Unknown]
  - Weight increased [Unknown]
  - Headache [Unknown]
  - Acne [Unknown]
  - Product dose omission [Unknown]

NARRATIVE: CASE EVENT DATE: 20200218
